FAERS Safety Report 24685457 (Version 1)
Quarter: 2024Q4

REPORT INFORMATION
  Report Type: Spontaneous
  Country: US (occurrence: US)
  Receive Date: 20241202
  Receipt Date: 20241202
  Transmission Date: 20250115
  Serious: Yes (Other)
  Sender: SANOFI AVENTIS
  Company Number: US-SA-2024SA354010

PATIENT
  Age: 49 Year
  Sex: Male

DRUGS (1)
  1. DUPIXENT [Suspect]
     Active Substance: DUPILUMAB
     Indication: Asthma
     Dosage: 600 MG, 1X
     Route: 058

REACTIONS (6)
  - Pneumonia [Unknown]
  - Rhinitis [Unknown]
  - Polyp [Unknown]
  - Sinusitis [Unknown]
  - Bronchitis chronic [Unknown]
  - Lung disorder [Unknown]

NARRATIVE: CASE EVENT DATE: 20230101
